FAERS Safety Report 25037957 (Version 1)
Quarter: 2025Q1

REPORT INFORMATION
  Report Type: Spontaneous
  Country: ES (occurrence: ES)
  Receive Date: 20250304
  Receipt Date: 20250304
  Transmission Date: 20250409
  Serious: Yes (Hospitalization)
  Sender: MYLAN
  Company Number: ES-MMM-Otsuka-1QTNL6JA

PATIENT
  Age: 28 Year
  Sex: Female

DRUGS (6)
  1. ARIPIPRAZOLE [Suspect]
     Active Substance: ARIPIPRAZOLE
     Indication: Product used for unknown indication
  2. ABILIFY MAINTENA [Suspect]
     Active Substance: ARIPIPRAZOLE
     Indication: Product used for unknown indication
  3. ABILIFY MAINTENA [Suspect]
     Active Substance: ARIPIPRAZOLE
  4. ABILIFY MAINTENA [Suspect]
     Active Substance: ARIPIPRAZOLE
  5. ABILIFY MAINTENA [Suspect]
     Active Substance: ARIPIPRAZOLE
  6. ABILIFY MAINTENA [Suspect]
     Active Substance: ARIPIPRAZOLE
     Indication: Psychotic disorder

REACTIONS (3)
  - Psychiatric decompensation [Unknown]
  - Behaviour disorder [Unknown]
  - Off label use [Not Recovered/Not Resolved]

NARRATIVE: CASE EVENT DATE: 20231001
